FAERS Safety Report 14546374 (Version 2)
Quarter: 2018Q1

REPORT INFORMATION
  Report Type: Report from Study
  Country: None (occurrence: US)
  Receive Date: 20180219
  Receipt Date: 20180301
  Transmission Date: 20180509
  Serious: Yes (Other)
  Sender: FDA-Public Use
  Company Number: US-ABBVIE-18K-163-2253520-00

PATIENT
  Age: 68 Year
  Sex: Female

DRUGS (3)
  1. ATORVASTATIN [Concomitant]
     Active Substance: ATORVASTATIN
     Indication: PRODUCT USED FOR UNKNOWN INDICATION
  2. LEVOTHYROXINE. [Concomitant]
     Active Substance: LEVOTHYROXINE
     Indication: PRODUCT USED FOR UNKNOWN INDICATION
  3. HUMIRA [Suspect]
     Active Substance: ADALIMUMAB
     Indication: PSORIATIC ARTHROPATHY
     Route: 058
     Dates: start: 2017

REACTIONS (6)
  - Inappropriate schedule of drug administration [Unknown]
  - Vomiting [Unknown]
  - Influenza [Recovered/Resolved]
  - Nausea [Recovered/Resolved]
  - Diarrhoea [Unknown]
  - Cyst [Recovered/Resolved]

NARRATIVE: CASE EVENT DATE: 2017
